FAERS Safety Report 5082876-0 (Version None)
Quarter: 2006Q3

REPORT INFORMATION
  Report Type: 
  Country: None (occurrence: None)
  Receive Date: 20060817
  Receipt Date: 20060731
  Transmission Date: 20061208
  Serious: Yes (Hospitalization)
  Sender: FDA-Public Use
  Company Number: ET-BOEHRINGER INGELHEIM PHARMACEUTICALS, INC.-2006-BP-08773RO

PATIENT
  Age: 9 Month

DRUGS (5)
  1. ZIDOVUDINE [Suspect]
     Indication: RETROVIRAL INFECTION
  2. ZIDOVUDINE [Suspect]
  3. VIRAMUNE [Suspect]
     Indication: HIV INFECTION
  4. LAMIVUDINE [Suspect]
     Indication: RETROVIRAL INFECTION
  5. TICE BCG [Suspect]

REACTIONS (5)
  - IMMUNE RECONSTITUTION SYNDROME [None]
  - INJECTION SITE ERYTHEMA [None]
  - INJECTION SITE SWELLING [None]
  - PURULENT DISCHARGE [None]
  - SWELLING [None]
